FAERS Safety Report 6674732-9 (Version None)
Quarter: 2010Q1

REPORT INFORMATION
  Report Type: 
  Country: None (occurrence: None)
  Receive Date: 20100329
  Receipt Date: 20090518
  Transmission Date: 20100710
  Serious: Yes (Other)
  Sender: FDA-Public Use
  Company Number: 2009192301

PATIENT
  Age: 35 Year
  Sex: Male

DRUGS (4)
  1. GEODON (ZIPRASIDONE HCL) UNKNOWN [Suspect]
     Dates: start: 20080701, end: 20090101
  2. CELEXA (CITALOPRAM HYCROBORMIDE) [Concomitant]
  3. TRAZODONE HCL [Concomitant]
  4. NALTREXONE HYDROCHLORIDE [Concomitant]

REACTIONS (3)
  - DYSKINESIA [None]
  - EXTRAPYRAMIDAL DISORDER [None]
  - TARDIVE DYSKINESIA [None]
